FAERS Safety Report 18255757 (Version 1)
Quarter: 2020Q3

REPORT INFORMATION
  Report Type: Report from Study
  Country: CN (occurrence: CN)
  Receive Date: 20200911
  Receipt Date: 20200911
  Transmission Date: 20201103
  Serious: Yes (Hospitalization, Other)
  Sender: FDA-Public Use
  Company Number: CN-BRISTOL-MYERS SQUIBB COMPANY-BMS-2020-073023

PATIENT
  Age: 64 Year
  Sex: Female

DRUGS (1)
  1. NIVOLUMAB [Suspect]
     Active Substance: NIVOLUMAB
     Indication: NON-SMALL CELL LUNG CANCER
     Dosage: 180 MILLIGRAM, QMO
     Route: 042
     Dates: start: 202004

REACTIONS (4)
  - Off label use [Unknown]
  - Respiratory failure [Unknown]
  - Asthma [Unknown]
  - Movement disorder [Unknown]

NARRATIVE: CASE EVENT DATE: 202008
